FAERS Safety Report 13206941 (Version 1)
Quarter: 2017Q1

REPORT INFORMATION
  Report Type: Spontaneous
  Country: US (occurrence: US)
  Receive Date: 20170209
  Receipt Date: 20170209
  Transmission Date: 20170428
  Serious: No
  Sender: FDA-Public Use
  Company Number: US-SA-2016SA228506

PATIENT
  Age: 68 Year
  Sex: Female

DRUGS (2)
  1. ALIROCUMAB PREFILLED SYRINGE [Concomitant]
     Indication: HYPERCHOLESTEROLAEMIA
     Dates: start: 20160922
  2. PRALUENT [Suspect]
     Active Substance: ALIROCUMAB
     Indication: HYPERCHOLESTEROLAEMIA
     Route: 058
     Dates: start: 20160922

REACTIONS (2)
  - Rash [Recovering/Resolving]
  - Pruritus [Recovering/Resolving]

NARRATIVE: CASE EVENT DATE: 2016
